FAERS Safety Report 7611566-2 (Version None)
Quarter: 2011Q3

REPORT INFORMATION
  Report Type: 
  Country: None (occurrence: None)
  Receive Date: 20110715
  Receipt Date: 20110711
  Transmission Date: 20111222
  Serious: Yes (Death)
  Sender: FDA-Public Use
  Company Number: US-GLAXOSMITHKLINE-A0926842A

PATIENT
  Age: 45 Year
  Sex: Male

DRUGS (5)
  1. VOTRIENT [Suspect]
     Indication: RENAL CANCER
     Dosage: 800MGD PER DAY
     Route: 048
     Dates: start: 20100527
  2. LIPITOR [Concomitant]
  3. GLIMEPIRIDE [Concomitant]
  4. GLUCOPHAGE [Concomitant]
  5. HYZAAR [Concomitant]

REACTIONS (8)
  - METASTASES TO LUNG [None]
  - WOUND [None]
  - ATELECTASIS [None]
  - RESPIRATORY FAILURE [None]
  - METASTASES TO BONE [None]
  - MALIGNANT PLEURAL EFFUSION [None]
  - HYPERCAPNIA [None]
  - DEPRESSED LEVEL OF CONSCIOUSNESS [None]
